FAERS Safety Report 9265373 (Version 2)
Quarter: 2013Q2

REPORT INFORMATION
  Report Type: Spontaneous
  Country: JP (occurrence: JP)
  Receive Date: 20130501
  Receipt Date: 20130501
  Transmission Date: 20140414
  Serious: Yes (Hospitalization)
  Sender: FDA-Public Use
  Company Number: JP-ASTRAZENECA-2013SE09296

PATIENT
  Age: 27353 Day
  Sex: Male
  Weight: 62 kg

DRUGS (6)
  1. ACCOLATE [Suspect]
     Indication: ASTHMA
     Route: 048
     Dates: start: 20120813, end: 20130124
  2. BRONICA [Suspect]
     Indication: ASTHMA
     Route: 048
     Dates: start: 20120813, end: 20130124
  3. DIOVAN [Concomitant]
     Indication: HYPERTENSION
     Route: 048
     Dates: start: 20090313, end: 20130124
  4. ZYLORIC [Concomitant]
     Indication: HYPERURICAEMIA
     Route: 048
     Dates: start: 20091003, end: 20130124
  5. VENETLIN [Concomitant]
     Indication: ASTHMA
     Route: 048
     Dates: start: 20120813, end: 20130124
  6. MUCODYNE [Concomitant]
     Indication: PRODUCTIVE COUGH
     Route: 048
     Dates: start: 20120719, end: 20130124

REACTIONS (7)
  - Haematuria [Unknown]
  - Bilirubinuria [Unknown]
  - Autoimmune hepatitis [Unknown]
  - Chronic hepatitis [Unknown]
  - Hepatic function abnormal [Recovering/Resolving]
  - Jaundice [Recovering/Resolving]
  - Drug-induced liver injury [Unknown]
